FAERS Safety Report 9753742 (Version 2)
Quarter: 2015Q3

REPORT INFORMATION
  Report Type: Spontaneous
  Country: US (occurrence: US)
  Receive Date: 20131213
  Receipt Date: 20150805
  Transmission Date: 20151125
  Serious: No
  Sender: FDA-Public Use
  Company Number: US-GILEAD-2010-0026669

PATIENT
  Age: 36 Year
  Sex: Male
  Weight: 61.69 kg

DRUGS (14)
  1. XALATAN [Concomitant]
     Active Substance: LATANOPROST
  2. TESTIM [Concomitant]
     Active Substance: TESTOSTERONE
  3. FOSAMAX [Concomitant]
     Active Substance: ALENDRONATE SODIUM
  4. LASIX [Concomitant]
     Active Substance: FUROSEMIDE
  5. OXYCODONE AND ACETAMINOPHEN [Concomitant]
     Active Substance: ACETAMINOPHEN\OXYCODONE\OXYCODONE HYDROCHLORIDE
  6. CALCIUM [Concomitant]
     Active Substance: CALCIUM
  7. VITAMIN D [Concomitant]
     Active Substance: CHOLECALCIFEROL
  8. LETAIRIS [Suspect]
     Active Substance: AMBRISENTAN
     Indication: PULMONARY ARTERIAL HYPERTENSION
     Route: 048
     Dates: start: 20090415, end: 20100120
  9. TYVASO [Concomitant]
     Active Substance: TREPROSTINIL
  10. BRIMONIDINE TARTRATE/TIMOLOL MALEATE [Concomitant]
  11. MULTIVITAMIN [Concomitant]
     Active Substance: VITAMINS
  12. NEULASTA [Concomitant]
     Active Substance: PEGFILGRASTIM
  13. COUMADIN [Concomitant]
     Active Substance: WARFARIN SODIUM
  14. STARLIX [Concomitant]
     Active Substance: NATEGLINIDE

REACTIONS (1)
  - Nasal congestion [Unknown]
